FAERS Safety Report 20727651 (Version 1)
Quarter: 2022Q2

REPORT INFORMATION
  Report Type: Other
  Country: US (occurrence: None)
  Receive Date: 20220419
  Receipt Date: 20220419
  Transmission Date: 20220721
  Serious: No
  Sender: FDA-Public Use
  Company Number: US-ROCHE-3005106

PATIENT
  Sex: Female
  Weight: 0.58 kg

DRUGS (5)
  1. AVASTIN [Suspect]
     Active Substance: BEVACIZUMAB
     Indication: Retinopathy of prematurity
     Dosage: 0.625 MG / 0.025 ML
     Route: 050
  2. PREDNISOLONE [Concomitant]
     Active Substance: PREDNISOLONE
     Route: 061
  3. CYCLOPENTOLATE;PHENYLEPHRINE [Concomitant]
     Route: 061
  4. METHYLPREDNISOLONE [Concomitant]
     Active Substance: METHYLPREDNISOLONE
     Route: 042
  5. KENALOG [Concomitant]
     Active Substance: TRIAMCINOLONE ACETONIDE
     Route: 050

REACTIONS (3)
  - Off label use [Unknown]
  - Off label use [Unknown]
  - No adverse event [Unknown]
